FAERS Safety Report 18210166 (Version 2)
Quarter: 2020Q4

REPORT INFORMATION
  Report Type: Report from Study
  Country: None (occurrence: CO)
  Receive Date: 20200829
  Receipt Date: 20201008
  Transmission Date: 20210113
  Serious: Yes (Hospitalization)
  Sender: FDA-Public Use
  Company Number: CO-ABBVIE-20K-036-3546638-00

PATIENT
  Sex: Female
  Weight: 50 kg

DRUGS (2)
  1. ZEMPLAR [Suspect]
     Active Substance: PARICALCITOL
     Indication: CHRONIC KIDNEY DISEASE
  2. ZEMPLAR [Suspect]
     Active Substance: PARICALCITOL
     Indication: HYPERPARATHYROIDISM SECONDARY
     Route: 048
     Dates: start: 20140429, end: 20200825

REACTIONS (7)
  - Ovarian cyst [Recovering/Resolving]
  - Renal disorder [Recovering/Resolving]
  - Anaemia [Recovering/Resolving]
  - Menstrual disorder [Recovering/Resolving]
  - Blood creatinine abnormal [Recovering/Resolving]
  - Anaemia [Recovering/Resolving]
  - Renal impairment [Recovering/Resolving]

NARRATIVE: CASE EVENT DATE: 2017
